APPROVED DRUG PRODUCT: SUCCINYLCHOLINE CHLORIDE
Active Ingredient: SUCCINYLCHOLINE CHLORIDE
Strength: 100MG/5ML (20MG/ML)
Dosage Form/Route: SOLUTION;INTRAMUSCULAR, INTRAVENOUS
Application: A218467 | Product #001 | TE Code: AP
Applicant: DR REDDYS LABORATORIES LTD
Approved: Jan 17, 2024 | RLD: No | RS: No | Type: RX